FAERS Safety Report 8738781 (Version 2)
Quarter: 2012Q4

REPORT INFORMATION
  Report Type: 
  Country: US (occurrence: US)
  Receive Date: 20120823
  Receipt Date: 20121001
  Transmission Date: 20130627
  Serious: No
  Sender: FDA-Public Use
  Company Number: US-BAYER-2012-086797

PATIENT
  Age: 67 Year
  Sex: Female

DRUGS (3)
  1. BETASERON [Suspect]
     Indication: MULTIPLE SCLEROSIS
     Dosage: 3 mg, QOD
     Route: 058
     Dates: start: 200803, end: 201208
  2. AMPYRA [Suspect]
     Indication: PRODUCT USED FOR UNKNOWN INDICATION
     Dosage: 10 mg, BID
     Dates: start: 201104
  3. AVONEX [Concomitant]

REACTIONS (1)
  - Injection site reaction [None]
